FAERS Safety Report 4828885-5 (Version None)
Quarter: 2005Q4

REPORT INFORMATION
  Report Type: 
  Country: None (occurrence: None)
  Receive Date: 20051114
  Receipt Date: 20051114
  Transmission Date: 20060501
  Serious: Yes (Other)
  Sender: FDA-Public Use
  Company Number: None

PATIENT
  Sex: Female
  Weight: 56.6996 kg

DRUGS (1)
  1. GENTAMICIN [Suspect]

REACTIONS (5)
  - BALANCE DISORDER [None]
  - DIZZINESS [None]
  - HYPOACUSIS [None]
  - VISION BLURRED [None]
  - WHEELCHAIR USER [None]
